FAERS Safety Report 8310077-9 (Version None)
Quarter: 2012Q2

REPORT INFORMATION
  Report Type: 
  Country: None (occurrence: None)
  Receive Date: 20120423
  Receipt Date: 20120412
  Transmission Date: 20120825
  Serious: Yes (Hospitalization, Other)
  Sender: FDA-Public Use
  Company Number: 2012SP019431

PATIENT
  Age: 49 Year
  Sex: Female

DRUGS (3)
  1. METHADONE HCL [Suspect]
     Indication: PRODUCT USED FOR UNKNOWN INDICATION
     Dates: start: 20120112, end: 20120112
  2. REMERON [Suspect]
     Indication: PRODUCT USED FOR UNKNOWN INDICATION
     Dosage: ; ONCE;
     Dates: start: 20120112, end: 20120112
  3. QUETIAPINE [Suspect]
     Indication: PRODUCT USED FOR UNKNOWN INDICATION
     Dosage: ; ONCE;
     Dates: start: 20120112, end: 20120112

REACTIONS (6)
  - SUICIDE ATTEMPT [None]
  - OXYGEN SATURATION DECREASED [None]
  - COMA [None]
  - POISONING [None]
  - BRADYPNOEA [None]
  - MULTIPLE DRUG OVERDOSE INTENTIONAL [None]
